FAERS Safety Report 12489055 (Version 2)
Quarter: 2016Q3

REPORT INFORMATION
  Report Type: Spontaneous
  Country: US (occurrence: US)
  Receive Date: 20160622
  Receipt Date: 20160720
  Transmission Date: 20161109
  Serious: Yes (Death, Hospitalization, Other)
  Sender: FDA-Public Use
  Company Number: US-BAYER-2016-118329

PATIENT
  Age: 82 Year
  Sex: Male

DRUGS (15)
  1. LIPITOR [Concomitant]
     Active Substance: ATORVASTATIN CALCIUM
  2. IRON [IRON] [Concomitant]
     Active Substance: IRON
  3. XOFIGO [Suspect]
     Active Substance: RADIUM RA-223 DICHLORIDE
     Indication: METASTASES TO BONE
  4. VITAMIN C [ASCORBIC ACID] [Concomitant]
  5. NORCO [Concomitant]
     Active Substance: ACETAMINOPHEN\HYDROCODONE BITARTRATE
  6. LUPRON [Concomitant]
     Active Substance: LEUPROLIDE ACETATE
  7. XOFIGO [Suspect]
     Active Substance: RADIUM RA-223 DICHLORIDE
     Indication: PROSTATE CANCER STAGE IV
  8. LASIX [Concomitant]
     Active Substance: FUROSEMIDE
  9. PROTONIX [Concomitant]
     Active Substance: PANTOPRAZOLE SODIUM
  10. COZAAR [Concomitant]
     Active Substance: LOSARTAN POTASSIUM
  11. ASA [Concomitant]
     Active Substance: ASPIRIN
  12. ABIRATERONE [Concomitant]
     Active Substance: ABIRATERONE
  13. MERIDOL [Concomitant]
     Active Substance: CHLORHEXIDINE GLUCONATE
  14. SYNTHROID [Concomitant]
     Active Substance: LEVOTHYROXINE SODIUM
  15. PREDNISONE. [Concomitant]
     Active Substance: PREDNISONE

REACTIONS (8)
  - Prostate cancer stage IV [None]
  - Dyspnoea exertional [None]
  - Death [Fatal]
  - Metastases to lymph nodes [None]
  - Hospitalisation [None]
  - Metastases to liver [None]
  - Blood alkaline phosphatase decreased [None]
  - Prostatic specific antigen increased [None]

NARRATIVE: CASE EVENT DATE: 20160521
